FAERS Safety Report 22525060 (Version 1)
Quarter: 2023Q2

REPORT INFORMATION
  Report Type: Spontaneous
  Country: US (occurrence: US)
  Receive Date: 20230606
  Receipt Date: 20230606
  Transmission Date: 20230721
  Serious: Yes (Hospitalization)
  Sender: FDA-Public Use
  Company Number: US-drreddys-LIT/USA/23/0166279

PATIENT
  Age: 39 Year
  Sex: Female

DRUGS (6)
  1. CIPROFLOXACIN [Suspect]
     Active Substance: CIPROFLOXACIN
     Indication: Anal fistula
  2. ADALIMUMAB [Suspect]
     Active Substance: ADALIMUMAB
     Indication: Anal fistula
  3. METHOTREXATE [Suspect]
     Active Substance: METHOTREXATE
     Indication: Anal fistula
  4. METRONIDAZOLE [Suspect]
     Active Substance: METRONIDAZOLE
     Indication: Anal fistula
  5. AMOXICILLIN\CLAVULANIC ACID [Suspect]
     Active Substance: AMOXICILLIN\CLAVULANIC ACID
     Indication: Anal fistula
  6. PREDNISONE [Suspect]
     Active Substance: PREDNISONE
     Indication: Anal fistula

REACTIONS (1)
  - Drug ineffective for unapproved indication [Unknown]
